FAERS Safety Report 4285111-6 (Version None)
Quarter: 2004Q1

REPORT INFORMATION
  Report Type: 
  Country: None (occurrence: None)
  Receive Date: 20040204
  Receipt Date: 20031211
  Transmission Date: 20041129
  Serious: Yes (Hospitalization)
  Sender: FDA-Public Use
  Company Number: BE-GLAXOSMITHKLINE-B0317500A

PATIENT
  Age: 75 Year
  Sex: Male
  Weight: 63 kg

DRUGS (4)
  1. REQUIP [Suspect]
     Indication: PARKINSONISM
     Dosage: 1MG THREE TIMES PER DAY
  2. L-DOPA [Concomitant]
     Indication: PARKINSONISM
     Route: 065
  3. LERCANIDIPINE [Concomitant]
     Route: 065
  4. BENSERAZIDE [Concomitant]
     Dosage: 125MG FOUR TIMES PER DAY

REACTIONS (2)
  - ELECTROENCEPHALOGRAM ABNORMAL [None]
  - HYPOTENSION [None]
